FAERS Safety Report 15638340 (Version 1)
Quarter: 2018Q4

REPORT INFORMATION
  Report Type: Spontaneous
  Country: US (occurrence: US)
  Receive Date: 20181120
  Receipt Date: 20181120
  Transmission Date: 20190205
  Serious: No
  Sender: FDA-Public Use
  Company Number: US-JNJFOC-20180836710

PATIENT
  Sex: Female

DRUGS (4)
  1. HCTZ [Concomitant]
     Active Substance: HYDROCHLOROTHIAZIDE
  2. VITAMIN B12 [Concomitant]
     Active Substance: CYANOCOBALAMIN
  3. AMLODIPINE [Concomitant]
     Active Substance: AMLODIPINE BESYLATE
  4. IMBRUVICA [Suspect]
     Active Substance: IBRUTINIB
     Indication: MARGINAL ZONE LYMPHOMA
     Route: 065
     Dates: start: 20180102, end: 2018

REACTIONS (4)
  - Rash [Unknown]
  - Skin lesion [Unknown]
  - Dyspepsia [Unknown]
  - Urinary tract infection [Unknown]
